FAERS Safety Report 7533228-2 (Version None)
Quarter: 2011Q2

REPORT INFORMATION
  Report Type: 
  Country: None (occurrence: None)
  Receive Date: 20110608
  Receipt Date: 20090918
  Transmission Date: 20111010
  Serious: Yes (Death, Hospitalization, Other)
  Sender: FDA-Public Use
  Company Number: US-BAYER-200933839NA

PATIENT
  Age: 64 Year
  Sex: Male
  Weight: 59 kg

DRUGS (65)
  1. DARVOCET [Concomitant]
     Route: 048
  2. LASIX [Concomitant]
     Dosage: 20 MG, QD
     Route: 048
  3. NORVASC [Concomitant]
     Dosage: 5 MG, QD
     Route: 048
  4. TOPROL-XL [Concomitant]
     Dosage: 25 MG, HS
     Route: 048
  5. MANNITOL [Concomitant]
     Dosage: 25 G, (PRIME)
     Route: 042
  6. SODIUM BICARBONATE [Concomitant]
     Dosage: 75 MEQ, (PRIME)
     Route: 042
     Dates: start: 20061215
  7. FRESH FROZEN PLASMA [Concomitant]
     Dosage: 2 U, UNK
     Route: 042
     Dates: start: 20061215, end: 20061215
  8. PLATELETS [Concomitant]
     Dosage: 2 U, UNK
     Route: 042
     Dates: start: 20061215, end: 20061215
  9. ALBUMIN (HUMAN) [Concomitant]
     Dosage: UNK
     Route: 042
     Dates: start: 20061215
  10. KAYEXALATE [Concomitant]
  11. LIDOCAINE [Concomitant]
  12. LIPITOR [Concomitant]
     Dosage: 10 MG, QD
     Route: 048
  13. PRIMACOR [Concomitant]
  14. REGLAN [Concomitant]
     Dosage: UNK
     Route: 048
  15. FENTANYL [Concomitant]
     Route: 042
  16. HEPARIN [Concomitant]
     Dosage: 30000 U, (PRIME)
     Route: 042
     Dates: start: 20061215
  17. TRASYLOL [Suspect]
     Indication: CORONARY ARTERY BYPASS
     Dosage: 1 ML, ONCE (INITIAL)
     Route: 042
     Dates: start: 20061215, end: 20061215
  18. DIGOXIN [Concomitant]
     Route: 048
  19. DOPAMINE HCL [Concomitant]
     Route: 048
  20. LEVAQUIN [Concomitant]
     Route: 048
  21. LIDOCAINE [Concomitant]
     Dosage: 100 MG, (PRIME)
     Route: 042
     Dates: start: 20061215
  22. MAGNESIUM HYDROXIDE [Concomitant]
     Route: 048
  23. MORPHINE [Concomitant]
  24. PLAVIX [Concomitant]
     Dosage: 75 MG, QD
     Route: 048
  25. TOPROL-XL [Concomitant]
     Dosage: 100 MG, QD
     Route: 048
  26. VERSED [Concomitant]
     Route: 048
  27. VERSED [Concomitant]
     Dosage: UNK
     Route: 042
     Dates: start: 20061215
  28. DOBUTAMINE HYDROCHLORIDE [Concomitant]
     Dosage: UNK
     Route: 042
     Dates: start: 20061215
  29. HEPARIN [Concomitant]
     Dosage: 30000 U, UNK
     Route: 042
     Dates: start: 20061215
  30. NITROUS OXIDE [Concomitant]
     Dosage: UNK, INHALED
     Route: 055
     Dates: start: 20061215
  31. CALCIUM CHLORIDE [Concomitant]
     Dosage: 1 G, UNK
     Route: 042
     Dates: start: 20061215
  32. TRASYLOL [Suspect]
     Dosage: 50 ML/HR (INFUSION)
     Route: 042
     Dates: start: 20061215, end: 20061215
  33. ALBUMIN (HUMAN) [Concomitant]
  34. AMIODARONE HCL [Concomitant]
     Route: 048
  35. ACETYLSALICYLIC ACID SRT [Concomitant]
     Dosage: 81 MG, QD
     Route: 048
  36. DEMEROL [Concomitant]
     Dosage: UNK
  37. LORTAB [Concomitant]
     Route: 048
  38. DILANTIN [Concomitant]
     Indication: CONVULSION
     Dosage: 100 MG, BID
     Route: 048
  39. GLUCOPHAGE [Concomitant]
  40. TRASYLOL [Suspect]
     Indication: VALVULOPLASTY CARDIAC
     Dosage: 300 ML (LOADING)
     Route: 042
     Dates: start: 20061215, end: 20061215
  41. CARDIZEM [Concomitant]
     Route: 048
  42. ZOFRAN [Concomitant]
     Route: 048
  43. PROTAMINE SULFATE [Concomitant]
     Dosage: 300 MG, UNK
     Route: 042
     Dates: start: 20061215
  44. PROTAMINE SULFATE [Concomitant]
     Dosage: 300 MG GIVEN AT ILLEGIBLE TIME
     Route: 042
     Dates: start: 20061215
  45. VECURONIUM BROMIDE [Concomitant]
     Dosage: UNK
     Route: 042
  46. LEVOPHED [Concomitant]
     Dosage: UNK
     Route: 042
     Dates: start: 20061215
  47. ATARAX [Concomitant]
     Route: 048
  48. BENADRYL [Concomitant]
     Route: 048
  49. DILANTIN [Concomitant]
     Dosage: 60 MG, TID
     Route: 048
  50. GLYBURIDE [Concomitant]
     Dosage: 2 MG, BID
     Route: 048
  51. METOPROLOL [Concomitant]
     Route: 048
  52. POTASSIUM CHLORIDE [Concomitant]
     Dosage: UNK
     Route: 042
     Dates: start: 20061215
  53. MAGNESIUM SULFATE [Concomitant]
     Dosage: 2 G, (PRIME)
     Route: 042
     Dates: start: 20061215
  54. NORMOSOL [Concomitant]
     Dosage: 2000 ML, (PRIME)
     Route: 042
     Dates: start: 20061215
  55. NEOSYNEPHRINE [Concomitant]
     Dosage: 2.5 MG, (PRIME)
     Route: 042
     Dates: start: 20061215
  56. TRASYLOL [Suspect]
     Dosage: 200 ML (PERFUSION PRIME)
     Route: 042
     Dates: start: 20061215, end: 20061215
  57. BUMEX [Concomitant]
     Route: 048
  58. NYSTATIN [Concomitant]
     Route: 048
  59. PEPCID [Concomitant]
     Route: 048
  60. PROTONIX [Concomitant]
     Route: 048
  61. ANCEF [Concomitant]
     Dosage: 1 G, UNK
     Route: 042
     Dates: start: 20061215
  62. MILRINONE [Concomitant]
     Dosage: 35 MG, UNK
     Route: 042
  63. INSULIN [Concomitant]
     Dosage: UNK
     Route: 042
     Dates: start: 20061215
  64. EPINEPHRINE [Concomitant]
     Dosage: UNK
     Route: 042
     Dates: start: 20061215
  65. RED BLOOD CELLS [Concomitant]
     Dosage: 1 U, UNK
     Route: 042
     Dates: start: 20061215, end: 20061215

REACTIONS (13)
  - RENAL FAILURE [None]
  - PAIN [None]
  - DEATH [None]
  - MULTI-ORGAN FAILURE [None]
  - RENAL IMPAIRMENT [None]
  - ANXIETY [None]
  - UNEVALUABLE EVENT [None]
  - FEAR [None]
  - RENAL INJURY [None]
  - STRESS [None]
  - INJURY [None]
  - EMOTIONAL DISTRESS [None]
  - ANHEDONIA [None]
